FAERS Safety Report 4893300-2 (Version None)
Quarter: 2006Q1

REPORT INFORMATION
  Report Type: 
  Country: None (occurrence: None)
  Receive Date: 20060124
  Receipt Date: 20060117
  Transmission Date: 20060701
  Serious: Yes (Hospitalization)
  Sender: FDA-Public Use
  Company Number: 2005155640

PATIENT
  Age: 49 Year
  Sex: Male

DRUGS (4)
  1. TAHOR (ATORVASTATIN) [Suspect]
     Indication: ILL-DEFINED DISORDER
     Dosage: 80 MG (1 IN 1 D)
     Dates: start: 20040101
  2. RAMIPRIL [Suspect]
     Indication: ILL-DEFINED DISORDER
     Dates: end: 20050101
  3. FUROSEMIDE [Concomitant]
  4. FLUINDIONE (FLUINDIONE) [Concomitant]

REACTIONS (6)
  - BRONCHIAL OBSTRUCTION [None]
  - BRONCHITIS [None]
  - CARDIAC DISORDER [None]
  - CARDIAC FAILURE [None]
  - CARDIAC VALVE DISEASE [None]
  - MYOCARDIAL ISCHAEMIA [None]
